FAERS Safety Report 15287151 (Version 3)
Quarter: 2018Q3

REPORT INFORMATION
  Report Type: Spontaneous
  Country: PL (occurrence: PL)
  Receive Date: 20180817
  Receipt Date: 20180829
  Transmission Date: 20181010
  Serious: Yes (Hospitalization, Other)
  Sender: FDA-Public Use
  Company Number: PL-REGENERON PHARMACEUTICALS, INC.-2017-26610

PATIENT

DRUGS (3)
  1. EYLEA [Suspect]
     Active Substance: AFLIBERCEPT
     Indication: NEOVASCULAR AGE-RELATED MACULAR DEGENERATION
     Dosage: DOSE, FREQUENCY AND TOTAL NUMBER OF DOSES RECEIVED NOT REPORTED
     Dates: start: 20171023
  2. FLOXAL [OFLOXACIN] [Concomitant]
     Indication: PRODUCT USED FOR UNKNOWN INDICATION
  3. EYLEA [Suspect]
     Active Substance: AFLIBERCEPT
     Dosage: DOSE, FREQUENCY AND TOTAL NUMBER OF DOSES RECEIVED NOT REPORTED
     Dates: start: 20171106

REACTIONS (10)
  - Discomfort [Unknown]
  - Anterior chamber inflammation [Unknown]
  - Eye pain [Unknown]
  - Blindness [Unknown]
  - Endophthalmitis [Unknown]
  - Visual impairment [Unknown]
  - Uveitis [Unknown]
  - Intraocular pressure increased [Unknown]
  - Quality of life decreased [Unknown]
  - Multiple use of single-use product [Unknown]

NARRATIVE: CASE EVENT DATE: 20171107
